FAERS Safety Report 8471929-2 (Version None)
Quarter: 2012Q2

REPORT INFORMATION
  Report Type: 
  Country: None (occurrence: None)
  Receive Date: 20120627
  Receipt Date: 20120621
  Transmission Date: 20120825
  Serious: Yes (Other)
  Sender: FDA-Public Use
  Company Number: ES-GLAXOSMITHKLINE-B0810254A

PATIENT
  Age: 41 Year
  Sex: Female

DRUGS (3)
  1. ARZERRA [Suspect]
     Indication: PRODUCT USED FOR UNKNOWN INDICATION
     Route: 042
     Dates: start: 20120217, end: 20120217
  2. ACETYLSALICYLIC ACID SRT [Concomitant]
  3. MONTELUKAST [Concomitant]

REACTIONS (3)
  - RASH [None]
  - LARYNGEAL OEDEMA [None]
  - BRONCHOSPASM [None]
